FAERS Safety Report 6020403-1 (Version None)
Quarter: 2008Q4

REPORT INFORMATION
  Report Type: 
  Country: None (occurrence: None)
  Receive Date: 20081226
  Receipt Date: 20081223
  Transmission Date: 20090506
  Serious: Yes (Other)
  Sender: FDA-Public Use
  Company Number: FR-BRISTOL-MYERS SQUIBB COMPANY-14429948

PATIENT
  Age: 69 Year
  Sex: Female
  Weight: 61 kg

DRUGS (11)
  1. ORENCIA [Suspect]
     Indication: RHEUMATOID ARTHRITIS
     Dosage: RECENT INFUSION: 20NOV08
     Route: 042
     Dates: start: 20080922
  2. CORTANCYL [Concomitant]
  3. SEROPLEX [Concomitant]
  4. CARDENSIEL [Concomitant]
  5. PLAVIX [Concomitant]
  6. CRESTOR [Concomitant]
  7. ALDACTONE [Concomitant]
  8. ZALDIAR [Concomitant]
  9. LASILIX [Concomitant]
     Route: 042
  10. KENZEN [Concomitant]
  11. ZOLPIDEM [Concomitant]

REACTIONS (1)
  - RIGHT VENTRICULAR FAILURE [None]
